FAERS Safety Report 6216897-9 (Version None)
Quarter: 2009Q2

REPORT INFORMATION
  Report Type: 
  Country: None (occurrence: None)
  Receive Date: 20090604
  Receipt Date: 20090526
  Transmission Date: 20091009
  Serious: Yes (Hospitalization)
  Sender: FDA-Public Use
  Company Number: KV200900192

PATIENT
  Age: 49 Year
  Sex: Female

DRUGS (5)
  1. MORPHINE SULFATE [Suspect]
     Indication: PAIN
     Dosage: 30 MG, QD, ORAL
     Route: 048
     Dates: start: 20081025, end: 20081029
  2. MORPHINE SULFATE [Suspect]
     Indication: PAIN
     Dosage: 15 MG, Q4H, ORAL
     Route: 048
     Dates: start: 20081025, end: 20081029
  3. HEPARIN [Concomitant]
  4. LISINOPRIL [Concomitant]
  5. ARIXTRA (FONAPARINUX SODIUM) [Concomitant]

REACTIONS (24)
  - ANAEMIA [None]
  - ASTHENIA [None]
  - CONSTIPATION [None]
  - DEHYDRATION [None]
  - DEPRESSED LEVEL OF CONSCIOUSNESS [None]
  - DEPRESSION [None]
  - DIABETES MELLITUS [None]
  - DRUG PRESCRIBING ERROR [None]
  - FOAMING AT MOUTH [None]
  - HYPERTENSION [None]
  - HYPOPHAGIA [None]
  - HYPOTENSION [None]
  - LETHARGY [None]
  - LIVER FUNCTION TEST ABNORMAL [None]
  - NAUSEA [None]
  - NERVE COMPRESSION [None]
  - OVERDOSE [None]
  - PNEUMONIA ASPIRATION [None]
  - PRODUCT QUALITY ISSUE [None]
  - PULMONARY EMBOLISM [None]
  - RENAL FAILURE [None]
  - RENAL FAILURE ACUTE [None]
  - UNRESPONSIVE TO STIMULI [None]
  - VOMITING [None]
